FAERS Safety Report 24165184 (Version 3)
Quarter: 2025Q1

REPORT INFORMATION
  Report Type: Spontaneous
  Country: US (occurrence: US)
  Receive Date: 20240802
  Receipt Date: 20250109
  Transmission Date: 20250408
  Serious: No
  Sender: BIOGEN
  Company Number: US-BIOGEN-2024BI01249360

PATIENT
  Age: 22 Year
  Sex: Male

DRUGS (5)
  1. SKYCLARYS [Suspect]
     Active Substance: OMAVELOXOLONE
     Indication: Friedreich^s ataxia
     Dosage: APPROXIMATE START OF DECEMBER, 2023/JANUARY, 2024; STILL ON 150MG DAILY
     Route: 050
     Dates: start: 20231215
  2. SKYCLARYS [Suspect]
     Active Substance: OMAVELOXOLONE
     Dosage: APPROXIMATE START OF DECEMBER, 2023/JANUARY, 2024; STILL ON 150MG DAILY
     Route: 050
     Dates: start: 20231215
  3. SKYCLARYS [Suspect]
     Active Substance: OMAVELOXOLONE
     Dosage: APPROXIMATE START OF DECEMBER, 2023/JANUARY, 2024; STILL ON 150MG DAILY
     Route: 050
     Dates: start: 20231215
  4. SKYCLARYS [Suspect]
     Active Substance: OMAVELOXOLONE
     Route: 050
     Dates: start: 20231215
  5. SKYCLARYS [Suspect]
     Active Substance: OMAVELOXOLONE
     Route: 050
     Dates: start: 20231215

REACTIONS (4)
  - Scar [Unknown]
  - Alanine aminotransferase increased [Unknown]
  - Aspartate aminotransferase increased [Unknown]
  - Underdose [Unknown]

NARRATIVE: CASE EVENT DATE: 20231227
